FAERS Safety Report 18219318 (Version 12)
Quarter: 2022Q3

REPORT INFORMATION
  Report Type: Report from Study
  Country: US (occurrence: US)
  Receive Date: 20200901
  Receipt Date: 20220906
  Transmission Date: 20221026
  Serious: Yes (Hospitalization, Other)
  Sender: FDA-Public Use
  Company Number: NVSC2019US087003

PATIENT
  Sex: Female
  Weight: 7.4 kg

DRUGS (15)
  1. ZOLGENSMA [Suspect]
     Active Substance: ONASEMNOGENE ABEPARVOVEC-XIOI
     Indication: Spinal muscular atrophy
     Dosage: 41.30 ML, SINGLE (1.1X E14 VG/KG), ONCE/SINGLE
     Route: 042
     Dates: start: 20190513
  2. PREDNISOLONE [Concomitant]
     Active Substance: PREDNISOLONE
     Indication: Prophylaxis
     Dosage: 2 MG/KG
     Route: 065
     Dates: start: 20190512, end: 20190514
  3. PREDNISOLONE [Concomitant]
     Active Substance: PREDNISOLONE
     Dosage: 1 MG/KG
     Route: 065
     Dates: start: 20190515, end: 20190519
  4. PREDNISOLONE [Concomitant]
     Active Substance: PREDNISOLONE
     Dosage: 1 MG/KG, QD
     Route: 065
     Dates: start: 20190520, end: 20190528
  5. PREDNISOLONE [Concomitant]
     Active Substance: PREDNISOLONE
     Dosage: 2 MG/KG
     Route: 065
     Dates: start: 20190520, end: 20190528
  6. PREDNISOLONE [Concomitant]
     Active Substance: PREDNISOLONE
     Dosage: 1 MG/KG
     Route: 065
     Dates: start: 20190529, end: 20190923
  7. PREDNISOLONE [Concomitant]
     Active Substance: PREDNISOLONE
     Dosage: 1.98 MG/KG, QD
     Route: 065
     Dates: start: 20190605
  8. PREDNISOLONE [Concomitant]
     Active Substance: PREDNISOLONE
     Dosage: 1.5 MG/KG, BID
     Route: 065
  9. RANITIDINE [Concomitant]
     Active Substance: RANITIDINE
     Indication: Gastrointestinal disorder prophylaxis
     Dosage: 4.00 MG/KG, QD
     Route: 065
     Dates: start: 20190520
  10. RANITIDINE [Concomitant]
     Active Substance: RANITIDINE
     Dosage: 3.4 MG/KG, BID
     Route: 065
  11. RANITIDINE [Concomitant]
     Active Substance: RANITIDINE
     Dosage: 2 ML, BID
     Route: 065
  12. RANITIDINE [Concomitant]
     Active Substance: RANITIDINE
     Dosage: 3.5 MG/KG, BID
     Route: 065
  13. RANITIDINE [Concomitant]
     Active Substance: RANITIDINE
     Dosage: 2 ML (15 MG/ML)
     Route: 065
     Dates: start: 20190426, end: 20190605
  14. MIRALAX [Concomitant]
     Active Substance: POLYETHYLENE GLYCOL 3350
     Indication: Product used for unknown indication
     Dosage: UNK, PRN
     Route: 065
  15. VITAMINS [Concomitant]
     Active Substance: VITAMINS
     Indication: Product used for unknown indication
     Dosage: UNK
     Route: 065

REACTIONS (12)
  - Thrombocytopenia [Recovered/Resolved]
  - Parainfluenzae virus infection [Recovered/Resolved]
  - Aspartate aminotransferase increased [Recovered/Resolved]
  - Leukopenia [Recovered/Resolved]
  - Troponin I increased [Recovered/Resolved]
  - Gamma-glutamyltransferase increased [Recovered/Resolved]
  - Gamma-glutamyltransferase increased [Recovered/Resolved]
  - Alanine aminotransferase increased [Recovered/Resolved]
  - Aspartate aminotransferase increased [Recovered/Resolved]
  - Alanine aminotransferase increased [Recovered/Resolved]
  - Transaminases increased [Recovered/Resolved]
  - Unintentional medical device removal [Recovered/Resolved]

NARRATIVE: CASE EVENT DATE: 20190520
